FAERS Safety Report 6972841-8 (Version None)
Quarter: 2010Q3

REPORT INFORMATION
  Report Type: 
  Country: None (occurrence: None)
  Receive Date: 20100909
  Receipt Date: 20100827
  Transmission Date: 20110219
  Serious: Yes (Other)
  Sender: FDA-Public Use
  Company Number: PHHY2010JP57297

PATIENT
  Age: 80 Year
  Sex: Male

DRUGS (1)
  1. DIOVAN HCT [Suspect]
     Indication: HYPERTENSION
     Dosage: 1 DF
     Route: 048
     Dates: start: 20090101, end: 20100827

REACTIONS (4)
  - ANAEMIA [None]
  - DIZZINESS [None]
  - HAEMATURIA [None]
  - HYPOTENSION [None]
